FAERS Safety Report 25929016 (Version 1)
Quarter: 2025Q4

REPORT INFORMATION
  Report Type: Spontaneous
  Country: EU (occurrence: EU)
  Receive Date: 20251016
  Receipt Date: 20251016
  Transmission Date: 20260117
  Serious: Yes (Death)
  Sender: RANBAXY
  Company Number: None

PATIENT
  Age: 75 Year
  Sex: Female
  Weight: 61 kg

DRUGS (3)
  1. IBUPROFEN [Suspect]
     Active Substance: IBUPROFEN
     Indication: Back pain
     Dosage: 400 MILLIGRAM, DAILY
     Route: 048
     Dates: start: 20250425, end: 20250510
  2. ACETAMINOPHEN [Suspect]
     Active Substance: ACETAMINOPHEN
     Indication: Back pain
     Dosage: UNK
     Route: 048
     Dates: start: 20250510
  3. CODEINE [Suspect]
     Active Substance: CODEINE
     Indication: Back pain
     Dosage: UNK
     Route: 048
     Dates: start: 20250510

REACTIONS (4)
  - Acute kidney injury [Fatal]
  - Anaemia [Fatal]
  - Pneumonia pneumococcal [Fatal]
  - Melaena [Fatal]

NARRATIVE: CASE EVENT DATE: 20250513
